FAERS Safety Report 11235141 (Version 1)
Quarter: 2015Q3

REPORT INFORMATION
  Report Type: Spontaneous
  Country: CN (occurrence: CN)
  Receive Date: 20150702
  Receipt Date: 20150702
  Transmission Date: 20151125
  Serious: Yes (Death, Other)
  Sender: FDA-Public Use
  Company Number: PHHY2015CN077671

PATIENT
  Age: 43 Year
  Sex: Male

DRUGS (6)
  1. 5-FLUOROURACIL [Suspect]
     Active Substance: FLUOROURACIL
     Indication: HEPATIC CANCER
     Dosage: 400 MG/M2, D1, D2
     Route: 040
     Dates: start: 20120917
  2. LEUCOVORIN CALCIUM. [Suspect]
     Active Substance: LEUCOVORIN CALCIUM
     Indication: LUNG CANCER METASTATIC
  3. 5-FLUOROURACIL [Suspect]
     Active Substance: FLUOROURACIL
     Indication: LUNG CANCER METASTATIC
     Dosage: 600 MG/M2, D1, D2
     Route: 042
     Dates: start: 20120917
  4. OXALIPLATIN. [Suspect]
     Active Substance: OXALIPLATIN
     Indication: HEPATIC CANCER
     Dosage: 85 MG/M2, D1
     Route: 042
     Dates: start: 20120917
  5. OXALIPLATIN. [Suspect]
     Active Substance: OXALIPLATIN
     Indication: LUNG CANCER METASTATIC
  6. LEUCOVORIN CALCIUM. [Suspect]
     Active Substance: LEUCOVORIN CALCIUM
     Indication: HEPATIC CANCER
     Dosage: 200 MG/M2, D1, D2
     Route: 042
     Dates: start: 20120917

REACTIONS (3)
  - Hepatic failure [Fatal]
  - Hepatitis B [Unknown]
  - Disease progression [Unknown]
